FAERS Safety Report 4407319-9 (Version None)
Quarter: 2004Q3

REPORT INFORMATION
  Report Type: 
  Country: None (occurrence: None)
  Receive Date: 20040721
  Receipt Date: 20040706
  Transmission Date: 20050211
  Serious: Yes (Other)
  Sender: FDA-Public Use
  Company Number: 200412247GDS

PATIENT
  Age: 82 Year
  Sex: Female

DRUGS (3)
  1. PROCARDIA XL [Suspect]
     Indication: HYPERTENSION
     Dosage: 30 MG, QD, ORAL
     Route: 048
     Dates: start: 19890101
  2. CIPRO [Suspect]
  3. PROTONIX [Suspect]
     Dates: start: 20040101

REACTIONS (13)
  - ARTHRITIS [None]
  - DEAFNESS UNILATERAL [None]
  - EAR DISORDER [None]
  - EYE HAEMORRHAGE [None]
  - GASTRIC HAEMORRHAGE [None]
  - GASTROOESOPHAGEAL REFLUX DISEASE [None]
  - HEARING IMPAIRED [None]
  - JOINT SPRAIN [None]
  - LIMB INJURY [None]
  - MACULAR DEGENERATION [None]
  - OSTEOPOROSIS [None]
  - ROTATOR CUFF SYNDROME [None]
  - SENSATION OF BLOCK IN EAR [None]
